FAERS Safety Report 12214713 (Version 2)
Quarter: 2016Q2

REPORT INFORMATION
  Report Type: Spontaneous
  Country: US (occurrence: US)
  Receive Date: 20160328
  Receipt Date: 20160406
  Transmission Date: 20160815
  Serious: Yes (Death)
  Sender: FDA-Public Use
  Company Number: US-009507513-1603USA010603

PATIENT
  Age: 60 Year
  Sex: Female

DRUGS (1)
  1. NOXAFIL [Suspect]
     Active Substance: POSACONAZOLE
     Indication: ANTIFUNGAL TREATMENT
     Dosage: 100 MG, TID
     Route: 048
     Dates: start: 20150504

REACTIONS (1)
  - Death [Fatal]

NARRATIVE: CASE EVENT DATE: 20160314
